FAERS Safety Report 20685840 (Version 1)
Quarter: 2022Q2

REPORT INFORMATION
  Report Type: Spontaneous
  Country: ES (occurrence: ES)
  Receive Date: 20220407
  Receipt Date: 20220407
  Transmission Date: 20220721
  Serious: Yes (Other)
  Sender: FDA-Public Use
  Company Number: ES-PFIZER INC-202200490091

PATIENT
  Age: 64 Year
  Sex: Female

DRUGS (2)
  1. ANIDULAFUNGIN [Suspect]
     Active Substance: ANIDULAFUNGIN
     Dosage: UNK
  2. BASILIXIMAB [Concomitant]
     Active Substance: BASILIXIMAB
     Dosage: UNK

REACTIONS (7)
  - Septic shock [Unknown]
  - Oliguria [Unknown]
  - Azotaemia [Unknown]
  - Blood creatinine increased [Unknown]
  - Klebsiella infection [Unknown]
  - Asymptomatic bacteriuria [Unknown]
  - Colitis [Unknown]
